FAERS Safety Report 12884099 (Version 2)
Quarter: 2016Q4

REPORT INFORMATION
  Report Type: Spontaneous
  Country: US (occurrence: US)
  Receive Date: 20161026
  Receipt Date: 20161028
  Transmission Date: 20170207
  Serious: No
  Sender: FDA-Public Use
  Company Number: US-PFIZER INC-2016494507

PATIENT
  Age: 45 Year
  Sex: Male
  Weight: 86.18 kg

DRUGS (4)
  1. LYRICA [Suspect]
     Active Substance: PREGABALIN
     Indication: DIABETIC NEUROPATHY
     Dosage: 50 MG, 3X/DAY
     Route: 048
     Dates: start: 201609
  2. LYRICA [Suspect]
     Active Substance: PREGABALIN
     Indication: PAIN
     Dosage: 75 MG, 3X/DAY
     Route: 048
  3. OXYCODONE [Concomitant]
     Active Substance: OXYCODONE
     Indication: PAIN
     Dosage: UNK
     Dates: start: 201603
  4. AMBIEN [Concomitant]
     Active Substance: ZOLPIDEM TARTRATE
     Indication: SLEEP DISORDER
     Dosage: UNK
     Dates: start: 201608

REACTIONS (8)
  - Condition aggravated [Not Recovered/Not Resolved]
  - Irritability [Unknown]
  - Personality change [Not Recovered/Not Resolved]
  - Restlessness [Unknown]
  - Drug ineffective [Not Recovered/Not Resolved]
  - Agitation [Unknown]
  - Mood swings [Unknown]
  - Anger [Unknown]

NARRATIVE: CASE EVENT DATE: 201609
